FAERS Safety Report 8172447-1 (Version None)
Quarter: 2012Q1

REPORT INFORMATION
  Report Type: 
  Country: None (occurrence: None)
  Receive Date: 20120224
  Receipt Date: 20120224
  Transmission Date: 20120608
  Serious: No
  Sender: FDA-Public Use
  Company Number: None

PATIENT
  Age: 78 Year
  Sex: Female

DRUGS (1)
  1. AUGMENTIN '125' [Suspect]
     Dates: start: 20101101, end: 20101111

REACTIONS (7)
  - BILIARY DILATATION [None]
  - HEPATITIS [None]
  - FATIGUE [None]
  - DIVERTICULUM [None]
  - ADRENAL ADENOMA [None]
  - ABDOMINAL HERNIA [None]
  - AUTOIMMUNE HEPATITIS [None]
